FAERS Safety Report 9693320 (Version 2)
Quarter: 2013Q4

REPORT INFORMATION
  Report Type: Spontaneous
  Country: US (occurrence: None)
  Receive Date: 20131114
  Receipt Date: 20131120
  Transmission Date: 20140711
  Serious: Yes (Death)
  Sender: FDA-Public Use
  Company Number: CO-UL-US-2013-003

PATIENT
  Age: 56 Year
  Sex: Male

DRUGS (1)
  1. ULESFIA [Suspect]
     Dates: end: 2013

REACTIONS (1)
  - Death [None]
